FAERS Safety Report 8427959-X (Version None)
Quarter: 2012Q2

REPORT INFORMATION
  Report Type: 
  Country: None (occurrence: None)
  Receive Date: 20120611
  Receipt Date: 20120402
  Transmission Date: 20120825
  Serious: No
  Sender: FDA-Public Use
  Company Number: US-ASTRAZENECA-2012SE21763

PATIENT
  Age: 71 Year
  Sex: Female

DRUGS (1)
  1. RHINOCORT [Suspect]
     Dosage: 1 SPRAY PER DAY
     Route: 045

REACTIONS (1)
  - SEASONAL ALLERGY [None]
